FAERS Safety Report 15314627 (Version 1)
Quarter: 2018Q3

REPORT INFORMATION
  Report Type: Report from Study
  Country: None (occurrence: IT)
  Receive Date: 20180824
  Receipt Date: 20180824
  Transmission Date: 20181010
  Serious: Yes (Other)
  Sender: FDA-Public Use
  Company Number: IT-ABBVIE-18S-083-2462418-00

PATIENT
  Age: 56 Year
  Sex: Female

DRUGS (1)
  1. DUODOPA [Suspect]
     Active Substance: CARBIDOPA\LEVODOPA
     Indication: PARKINSON^S DISEASE
     Dosage: MD: 5,5+3??CR: 1,2??ED: 1,4
     Route: 050
     Dates: start: 20150714

REACTIONS (2)
  - Psychotic disorder [Unknown]
  - Affective disorder [Unknown]

NARRATIVE: CASE EVENT DATE: 201808
